FAERS Safety Report 7204080-X (Version None)
Quarter: 2010Q4

REPORT INFORMATION
  Report Type: 
  Country: None (occurrence: None)
  Receive Date: 20101220
  Receipt Date: 20100929
  Transmission Date: 20110411
  Serious: Yes (Death)
  Sender: FDA-Public Use
  Company Number: 2010BR0055

PATIENT
  Age: 3 Month
  Sex: Male

DRUGS (1)
  1. ORFADIN [Suspect]
     Indication: TYROSINAEMIA
     Dosage: 4 MG (2 MG, 2 IN 1 D)
     Route: 048
     Dates: start: 20100812, end: 20100822

REACTIONS (1)
  - PULMONARY HAEMORRHAGE [None]
